FAERS Safety Report 9403187 (Version 1)
Quarter: 2013Q3

REPORT INFORMATION
  Report Type: Spontaneous
  Country: US (occurrence: None)
  Receive Date: 20130715
  Receipt Date: 20130715
  Transmission Date: 20140515
  Serious: Yes (Other)
  Sender: FDA-Public Use
  Company Number: None

PATIENT
  Age: 35 Year
  Sex: Female
  Weight: 47.63 kg

DRUGS (1)
  1. CLOBETASOL [Suspect]
     Indication: PSORIASIS
     Dosage: ONCE A DAY FOR 2 WEEKS
     Dates: start: 20130603

REACTIONS (9)
  - Ageusia [None]
  - Tremor [None]
  - Nausea [None]
  - Headache [None]
  - Irritability [None]
  - Disturbance in attention [None]
  - Dizziness [None]
  - Syncope [None]
  - Product taste abnormal [None]
